FAERS Safety Report 7375110-X (Version None)
Quarter: 2011Q1

REPORT INFORMATION
  Report Type: 
  Country: None (occurrence: None)
  Receive Date: 20110325
  Receipt Date: 20110301
  Transmission Date: 20110831
  Serious: No
  Sender: FDA-Public Use
  Company Number: US-B.I. PHARMACEUTICALS,INC./RIDGEFIELD-2011-BP-05908BP

PATIENT
  Sex: Female

DRUGS (6)
  1. OMEPRAZOLE [Concomitant]
     Indication: GASTROOESOPHAGEAL REFLUX DISEASE
     Route: 048
  2. PRADAXA [Suspect]
     Indication: ATRIAL FIBRILLATION
     Dosage: 300 MG
     Route: 048
     Dates: start: 20110208
  3. LANOXIN [Concomitant]
     Indication: CARDIAC DISORDER
     Route: 048
  4. AVAPRO [Concomitant]
     Indication: HYPERTENSION
     Route: 048
  5. TRAZODONE [Concomitant]
     Indication: INSOMNIA
     Dosage: 25 MG
     Route: 048
  6. IMODIUM [Concomitant]
     Indication: IRRITABLE BOWEL SYNDROME

REACTIONS (1)
  - HYPERCHLORHYDRIA [None]
